FAERS Safety Report 7027437-9 (Version None)
Quarter: 2010Q3

REPORT INFORMATION
  Report Type: 
  Country: None (occurrence: None)
  Receive Date: 20100930
  Receipt Date: 20100917
  Transmission Date: 20110219
  Serious: Yes (Hospitalization)
  Sender: FDA-Public Use
  Company Number: CIP10002285

PATIENT
  Age: 80 Year
  Sex: Male

DRUGS (1)
  1. RISEDRONATE SODIUM [Suspect]
     Indication: OSTEOPOROSIS
     Dosage: 17.5 MG ONCE A WEEK, ORAL
     Route: 048
     Dates: end: 20100801

REACTIONS (1)
  - FEMUR FRACTURE [None]
